FAERS Safety Report 6346909-3 (Version None)
Quarter: 2009Q3

REPORT INFORMATION
  Report Type: 
  Country: None (occurrence: None)
  Receive Date: 20090909
  Receipt Date: 20090909
  Transmission Date: 20100115
  Serious: Yes (Life-Threatening)
  Sender: FDA-Public Use
  Company Number: None

PATIENT
  Age: 51 Year
  Sex: Male
  Weight: 76.2043 kg

DRUGS (1)
  1. REMICADE [Suspect]
     Indication: PSORIASIS
     Dosage: 10 MG/KG EVERY 8 WEEKS IV DRIP
     Route: 041

REACTIONS (1)
  - CHRONIC LYMPHOCYTIC LEUKAEMIA [None]
